FAERS Safety Report 24166900 (Version 1)
Quarter: 2024Q3

REPORT INFORMATION
  Report Type: Spontaneous
  Country: CA (occurrence: CA)
  Receive Date: 20240802
  Receipt Date: 20240802
  Transmission Date: 20241017
  Serious: Yes (Other)
  Sender: BAYER
  Company Number: CA-BAYER-2024A110798

PATIENT
  Age: 67 Year
  Sex: Female

DRUGS (9)
  1. LORATADINE [Suspect]
     Active Substance: LORATADINE
     Route: 065
  2. PROPRANOLOL [Suspect]
     Active Substance: PROPRANOLOL HYDROCHLORIDE
  3. OLANZAPINE [Suspect]
     Active Substance: OLANZAPINE
  4. VALACYCLOVIR [Suspect]
     Active Substance: VALACYCLOVIR HYDROCHLORIDE
  5. PANTOPRAZOLE [Suspect]
     Active Substance: PANTOPRAZOLE
  6. AMLODIPINE [Suspect]
     Active Substance: AMLODIPINE BESYLATE
  7. FENTANYL [Suspect]
     Active Substance: FENTANYL\FENTANYL CITRATE
  8. ALLOPURINOL [Suspect]
     Active Substance: ALLOPURINOL
  9. ATOVAQUONE [Suspect]
     Active Substance: ATOVAQUONE

REACTIONS (1)
  - Febrile neutropenia [Unknown]
